FAERS Safety Report 19500599 (Version 1)
Quarter: 2021Q3

REPORT INFORMATION
  Report Type: Spontaneous
  Country: CA (occurrence: CA)
  Receive Date: 20210707
  Receipt Date: 20210707
  Transmission Date: 20211014
  Serious: Yes (Other)
  Sender: FDA-Public Use
  Company Number: CA-AMGEN-CANSP2021102854

PATIENT
  Age: 74 Year
  Sex: Female

DRUGS (2)
  1. RITUXIMAB. [Concomitant]
     Active Substance: RITUXIMAB
     Dosage: UNK
     Dates: start: 2016
  2. NPLATE [Suspect]
     Active Substance: ROMIPLOSTIM
     Indication: IMMUNE THROMBOCYTOPENIA
     Dosage: UNK, QWK
     Route: 065

REACTIONS (1)
  - Transient ischaemic attack [Recovered/Resolved]

NARRATIVE: CASE EVENT DATE: 202012
